FAERS Safety Report 9473911 (Version 1)
Quarter: 2013Q3

REPORT INFORMATION
  Report Type: Spontaneous
  Country: US (occurrence: US)
  Receive Date: 20130823
  Receipt Date: 20130823
  Transmission Date: 20140515
  Serious: No
  Sender: FDA-Public Use
  Company Number: US-BRISTOL-MYERS SQUIBB COMPANY-17137233

PATIENT
  Age: 59 Year
  Sex: Female
  Weight: 99.77 kg

DRUGS (13)
  1. SPRYCEL [Suspect]
     Indication: CHRONIC MYELOID LEUKAEMIA
     Dosage: PRESCRIPTION#: 410-000000412537
  2. SYNTHROID [Concomitant]
  3. PROZAC [Concomitant]
  4. VITAMIN D [Concomitant]
  5. POTASSIUM [Concomitant]
  6. CYCLOBENZAPRINE [Concomitant]
  7. LORAZEPAM [Concomitant]
  8. HYDROCHLOROTHIAZIDE [Concomitant]
  9. VICODIN [Concomitant]
  10. ONDANSETRON [Concomitant]
  11. FOSAMAX [Concomitant]
  12. MAGNESIUM [Concomitant]
  13. CALCIUM [Concomitant]

REACTIONS (5)
  - Pain [Unknown]
  - Headache [Unknown]
  - Abdominal pain lower [Recovering/Resolving]
  - Fatigue [Unknown]
  - Insomnia [Unknown]
